FAERS Safety Report 10270628 (Version 1)
Quarter: 2014Q3

REPORT INFORMATION
  Report Type: Spontaneous
  Country: US (occurrence: US)
  Receive Date: 20140701
  Receipt Date: 20140701
  Transmission Date: 20150326
  Serious: No
  Sender: FDA-Public Use
  Company Number: US-TEVA-491298USA

PATIENT
  Age: 55 Year
  Sex: Male

DRUGS (8)
  1. AMPYRA [Suspect]
     Active Substance: DALFAMPRIDINE
     Indication: MULTIPLE SCLEROSIS
     Dosage: 20 MILLIGRAM DAILY;
     Dates: start: 2013
  2. VITAMIN D [Concomitant]
     Active Substance: CHOLECALCIFEROL
  3. COQ10 [Concomitant]
     Active Substance: UBIDECARENONE
  4. BACLOFEN. [Concomitant]
     Active Substance: BACLOFEN
  5. BABY ASPIRIN [Concomitant]
     Active Substance: ASPIRIN
  6. COPAXONE [Suspect]
     Active Substance: GLATIRAMER ACETATE
     Indication: PRODUCT USED FOR UNKNOWN INDICATION
  7. RITALIN [Concomitant]
     Active Substance: METHYLPHENIDATE HYDROCHLORIDE
  8. FLOMAX [Concomitant]
     Active Substance: TAMSULOSIN HYDROCHLORIDE

REACTIONS (1)
  - Flushing [Not Recovered/Not Resolved]

NARRATIVE: CASE EVENT DATE: 201312
